FAERS Safety Report 16588243 (Version 1)
Quarter: 2019Q3

REPORT INFORMATION
  Report Type: Spontaneous
  Country: US (occurrence: US)
  Receive Date: 20190717
  Receipt Date: 20190717
  Transmission Date: 20191004
  Serious: Yes (Other)
  Sender: FDA-Public Use
  Company Number: US-ANIPHARMA-2019-US-012883

PATIENT
  Sex: Female

DRUGS (2)
  1. LITHIUM CARBONATE (NON-SPECIFIC) [Suspect]
     Active Substance: LITHIUM
     Indication: PRODUCT USED FOR UNKNOWN INDICATION
     Dosage: ER 300 MG X 1 DAILY
  2. LITHOBID [Suspect]
     Active Substance: LITHIUM CARBONATE
     Indication: PRODUCT USED FOR UNKNOWN INDICATION
     Dosage: ER 300 MG X 1 DAILY
     Dates: start: 1981

REACTIONS (3)
  - Adverse drug reaction [Unknown]
  - Neoplasm malignant [Unknown]
  - Intracardiac thrombus [Unknown]
